FAERS Safety Report 4802956-1 (Version None)
Quarter: 2005Q4

REPORT INFORMATION
  Report Type: 
  Country: None (occurrence: None)
  Receive Date: 20051013
  Receipt Date: 20050929
  Transmission Date: 20060501
  Serious: Yes (Other)
  Sender: FDA-Public Use
  Company Number: PHHO2004JP09140

PATIENT
  Age: 76 Year
  Sex: Female
  Weight: 43.9989 kg

DRUGS (7)
  1. VISUDYNE [Suspect]
     Indication: MACULAR DEGENERATION
     Dosage: 8.4 MG DAILY IV
     Route: 042
     Dates: start: 20040607, end: 20040607
  2. ALLOPURINOL [Concomitant]
  3. POLARAMINE [Concomitant]
  4. ZANTAC [Concomitant]
  5. LASIX [Concomitant]
  6. NOVOLIN [Concomitant]
  7. HOKUNALIN [Concomitant]

REACTIONS (4)
  - DISEASE PROGRESSION [None]
  - MACULAR OEDEMA [None]
  - RETINAL OEDEMA [None]
  - VISUAL ACUITY REDUCED [None]
